FAERS Safety Report 4301729-6 (Version None)
Quarter: 2004Q1

REPORT INFORMATION
  Report Type: 
  Country: None (occurrence: None)
  Receive Date: 20040219
  Receipt Date: 20040211
  Transmission Date: 20041129
  Serious: Yes (Hospitalization, Other)
  Sender: FDA-Public Use
  Company Number: USA-2003-0006290

PATIENT
  Age: 35 Year
  Sex: Male
  Weight: 83.9 kg

DRUGS (7)
  1. OXYCONTIN [Suspect]
     Indication: PAIN
     Dosage: SEE IMAGE
     Route: 048
     Dates: start: 19990101, end: 20020101
  2. OXYCONTIN [Suspect]
     Indication: PAIN
     Dosage: SEE IMAGE
     Route: 048
     Dates: start: 19990101
  3. PHENERGAN [Concomitant]
  4. DARVOCET-N 100 [Concomitant]
  5. TESTOSTERONE [Concomitant]
  6. ULTRAM [Concomitant]
  7. ZOCOR [Concomitant]

REACTIONS (29)
  - ABDOMINAL PAIN [None]
  - ANAL DISCOMFORT [None]
  - ANAL FISSURE [None]
  - ASTHENIA [None]
  - BRONCHITIS [None]
  - CHEST PAIN [None]
  - CONSTIPATION [None]
  - DEPRESSION [None]
  - DIARRHOEA [None]
  - DRUG DEPENDENCE [None]
  - DRUG WITHDRAWAL SYNDROME [None]
  - DYSLIPIDAEMIA [None]
  - DYSPNOEA [None]
  - EMOTIONAL DISTRESS [None]
  - HEADACHE [None]
  - INSOMNIA [None]
  - LIVER FUNCTION TEST ABNORMAL [None]
  - NAUSEA [None]
  - NEUROPATHIC PAIN [None]
  - NEUROPATHY PERIPHERAL [None]
  - PAIN [None]
  - PAIN IN EXTREMITY [None]
  - PHARYNGITIS [None]
  - POLYCYTHAEMIA [None]
  - PROCTALGIA [None]
  - RECTAL HAEMORRHAGE [None]
  - SINUSITIS [None]
  - SMALL INTESTINAL OBSTRUCTION [None]
  - VOMITING [None]
